FAERS Safety Report 25084945 (Version 1)
Quarter: 2025Q1

REPORT INFORMATION
  Report Type: Report from Study
  Country: US (occurrence: US)
  Receive Date: 20250317
  Receipt Date: 20250317
  Transmission Date: 20250409
  Serious: Yes (Hospitalization)
  Sender: ETON PHARMACEUTICALS, INC
  Company Number: US-ETON PHARMACEUTICALS, INC-2025ETO000088

PATIENT

DRUGS (12)
  1. ALKINDI SPRINKLE [Suspect]
     Active Substance: HYDROCORTISONE
     Indication: Adrenocortical insufficiency acute
     Route: 048
     Dates: start: 20230606
  2. ALKINDI SPRINKLE [Suspect]
     Active Substance: HYDROCORTISONE
     Indication: Hypopituitarism
     Route: 048
     Dates: start: 20230606
  3. ALKINDI SPRINKLE [Suspect]
     Active Substance: HYDROCORTISONE
     Route: 048
     Dates: start: 20230606
  4. DESMOPRESSIN [Concomitant]
     Active Substance: DESMOPRESSIN
     Indication: Product used for unknown indication
  5. IBUPROFEN [Concomitant]
     Active Substance: IBUPROFEN
     Indication: Product used for unknown indication
  6. IRON [Concomitant]
     Active Substance: IRON
     Indication: Product used for unknown indication
  7. LEVOTHYROXINE [Concomitant]
     Active Substance: LEVOTHYROXINE
     Indication: Product used for unknown indication
  8. MIRALAX [Concomitant]
     Active Substance: POLYETHYLENE GLYCOL 3350
     Indication: Product used for unknown indication
  9. ACETAMINOPHEN [Concomitant]
     Active Substance: ACETAMINOPHEN
     Indication: Product used for unknown indication
  10. FAMOTIDINE [Concomitant]
     Active Substance: FAMOTIDINE
     Indication: Product used for unknown indication
  11. GABAPENTIN [Concomitant]
     Active Substance: GABAPENTIN
     Indication: Product used for unknown indication
  12. AMOXICILLIN [Concomitant]
     Active Substance: AMOXICILLIN
     Indication: Ear infection

REACTIONS (2)
  - Tonsillectomy [Unknown]
  - Adenoidectomy [Unknown]

NARRATIVE: CASE EVENT DATE: 20250228
